FAERS Safety Report 9285720 (Version 1)
Quarter: 2013Q2

REPORT INFORMATION
  Report Type: Spontaneous
  Country: US (occurrence: US)
  Receive Date: 20130513
  Receipt Date: 20130513
  Transmission Date: 20140414
  Serious: Yes (Hospitalization)
  Sender: FDA-Public Use
  Company Number: US-ASTRAZENECA-2013SE30854

PATIENT
  Age: 752 Month
  Sex: Male
  Weight: 73.4 kg

DRUGS (18)
  1. TOPROL XL [Suspect]
     Route: 048
  2. TOPROL XL [Suspect]
     Route: 048
  3. REVATIO [Suspect]
     Indication: PULMONARY ARTERIAL HYPERTENSION
     Route: 048
  4. JANTOVEN [Suspect]
     Dosage: TAKE AS DIRECT BY ANTICOAGULATION CLINIC
     Route: 065
  5. BUMEX [Concomitant]
     Route: 048
  6. COLCHICINE [Concomitant]
     Indication: GOUT
     Route: 048
  7. ZAROXOLYN [Concomitant]
     Route: 048
  8. PROVENTIL HFA [Concomitant]
     Dosage: 108 MCG, INHALE TWO PUFFS IN TO LUNGS EVERY SIX HOURS AS NEEDED
     Route: 055
  9. VENTOLIN HFA [Concomitant]
     Dosage: 108 MCG, INHALE TWO PUFFS IN TO LUNGS EVERY SIX HOURS AS NEEDED
     Route: 055
  10. ROCALTROL [Concomitant]
     Route: 048
  11. INSPRA [Concomitant]
     Route: 048
  12. ERGOCALCIFEROL [Concomitant]
     Dosage: 50000 UNITS, TAKE CAPSULE WEEKLY FOR 4 WEEKS THEN TAKE 1 CAPSULE MONTHLY FOR  5 MONTHS
     Route: 048
  13. ULORIC [Concomitant]
     Dosage: 40 MG DAILY AS NEEDED
     Route: 048
  14. DUONEB [Concomitant]
     Dosage: 0.5/2.5, 3 ML IN TO LUNGS EVERY SIX HOURS AS NEEDED
     Route: 055
  15. ZOFRAN [Concomitant]
     Indication: NAUSEA
     Dosage: 1 TABLET EVERY 8 HOURS AS NEEDED
     Route: 048
  16. K-DUR [Concomitant]
     Route: 048
  17. KLOR-CON [Concomitant]
     Route: 048
  18. ULTRAM [Concomitant]
     Indication: PAIN
     Dosage: TAKE 1 TABLET EVERY 8 HOUS AS NEEDED
     Route: 048

REACTIONS (21)
  - Cardiac failure chronic [Not Recovered/Not Resolved]
  - Pulmonary hypertension [Unknown]
  - Renal failure chronic [Unknown]
  - Mitral valve disease [Unknown]
  - Renal failure acute [Unknown]
  - Gout [Unknown]
  - Hepatic cirrhosis [Unknown]
  - Incision site pain [Unknown]
  - Renal failure [Unknown]
  - Sick sinus syndrome [Unknown]
  - Tricuspid valve incompetence [Unknown]
  - Hypergammaglobulinaemia benign monoclonal [Unknown]
  - Anaemia of chronic disease [Unknown]
  - Cardiomyopathy [Unknown]
  - Hypertension [Unknown]
  - Dyspnoea [Unknown]
  - Arthralgia [Unknown]
  - Atrial fibrillation [Unknown]
  - Fluid overload [Unknown]
  - Thrombocytopenia [Unknown]
  - Nausea [Unknown]
